FAERS Safety Report 20232376 (Version 17)
Quarter: 2022Q2

REPORT INFORMATION
  Report Type: Report from Study
  Country: TR (occurrence: None)
  Receive Date: 20211227
  Receipt Date: 20220620
  Transmission Date: 20220721
  Serious: Yes (Hospitalization)
  Sender: FDA-Public Use
  Company Number: TR-ROCHE-2984439

PATIENT
  Age: 61 Year
  Sex: Female
  Weight: 78 kg

DRUGS (70)
  1. ATEZOLIZUMAB [Suspect]
     Active Substance: ATEZOLIZUMAB
     Indication: Bile duct cancer
     Dosage: MOST RECENT DOSE (1200 MG) ON 09/DEC/2021
     Route: 042
     Dates: start: 20210805
  2. BEVACIZUMAB [Suspect]
     Active Substance: BEVACIZUMAB
     Indication: Bile duct cancer
     Dosage: MOST RECENT DOSE ON 09/DEC/2021
     Route: 042
     Dates: start: 20210805
  3. CISPLATIN [Suspect]
     Active Substance: CISPLATIN
     Indication: Bile duct cancer
     Dosage: DOSE LAST STUDY DRUG ADMIN PRIOR AE: 26.1 MG?START DATE OF MOST RECENT DOSE (26.1 MG) OF STUDY DRUG
     Route: 042
     Dates: start: 20210805
  4. GEMCITABINE [Suspect]
     Active Substance: GEMCITABINE
     Indication: Bile duct cancer
     Dosage: START DATE OF MOST RECENT DOSE OF STUDY DRUG PRIOR TO AE 09-DEC-2021
     Route: 042
     Dates: start: 20210805
  5. PIRACETAM [Concomitant]
     Active Substance: PIRACETAM
     Dates: start: 20211104, end: 20211117
  6. PIRACETAM [Concomitant]
     Active Substance: PIRACETAM
     Dates: start: 20211118
  7. PANTOPRAZOLE SODIUM [Concomitant]
     Active Substance: PANTOPRAZOLE SODIUM
     Indication: Prophylaxis
     Dates: start: 20211104, end: 20211117
  8. PANTOPRAZOLE SODIUM [Concomitant]
     Active Substance: PANTOPRAZOLE SODIUM
     Dates: start: 20211118, end: 20211216
  9. PANTOPRAZOLE SODIUM [Concomitant]
     Active Substance: PANTOPRAZOLE SODIUM
     Dates: start: 20210805
  10. AVIJECT [Concomitant]
     Indication: Prophylaxis
     Dates: start: 20211118, end: 20211118
  11. AVIJECT [Concomitant]
     Dates: start: 20211209, end: 20211209
  12. AVIJECT [Concomitant]
     Dates: start: 20210805, end: 20211209
  13. NEVOFAM [Concomitant]
     Indication: Prophylaxis
     Dates: start: 20211118, end: 20211118
  14. NEVOFAM [Concomitant]
     Dates: start: 20211209, end: 20211209
  15. NEVOFAM [Concomitant]
     Dosage: 20 MG/5ML
     Dates: start: 20210805, end: 20211209
  16. DEKORT [Concomitant]
     Active Substance: DEXAMETHASONE
     Indication: Prophylaxis
     Dates: start: 20211118, end: 20211118
  17. DEKORT [Concomitant]
     Active Substance: DEXAMETHASONE
     Dates: start: 20211209, end: 20211209
  18. DEKORT [Concomitant]
     Active Substance: DEXAMETHASONE
     Dates: start: 20210805, end: 20211209
  19. LOTISA [Concomitant]
     Indication: Prophylaxis
     Dosage: 250 MCG
     Dates: start: 20211118, end: 20211118
  20. GRANEXA [Concomitant]
     Indication: Prophylaxis
     Dates: start: 20211118, end: 20211122
  21. GRANEXA [Concomitant]
     Dates: start: 20211125, end: 20211129
  22. GRANEXA [Concomitant]
     Dates: start: 20211209, end: 20211213
  23. DEXAMETHASONE [Concomitant]
     Active Substance: DEXAMETHASONE
     Indication: Prophylaxis
     Dates: start: 20211118, end: 20211120
  24. DEXAMETHASONE [Concomitant]
     Active Substance: DEXAMETHASONE
     Dates: start: 20211125, end: 20211127
  25. DEXAMETHASONE [Concomitant]
     Active Substance: DEXAMETHASONE
     Dates: start: 20211209, end: 20211211
  26. EMEND [Concomitant]
     Active Substance: APREPITANT
     Indication: Prophylaxis
     Dates: start: 20211118, end: 20211118
  27. EMEND [Concomitant]
     Active Substance: APREPITANT
     Dates: start: 20211119, end: 20211120
  28. EMEND [Concomitant]
     Active Substance: APREPITANT
     Dates: start: 20211120, end: 20211120
  29. EMEND [Concomitant]
     Active Substance: APREPITANT
     Dates: start: 20211209, end: 20211209
  30. EMEND [Concomitant]
     Active Substance: APREPITANT
     Dates: start: 20211210, end: 20211211
  31. EMEND [Concomitant]
     Active Substance: APREPITANT
     Dates: start: 20211211, end: 20211211
  32. STAFINE [Concomitant]
     Indication: Prophylaxis
     Dates: start: 20211118, end: 20211125
  33. DULCOLAX (BISACODYL) [Concomitant]
     Active Substance: BISACODYL
     Dates: start: 20211025, end: 20211118
  34. DUPHALAC [Concomitant]
     Active Substance: LACTULOSE
     Dosage: 10 GR / 15 ML
     Dates: start: 20211125
  35. BETAHISTINE [Concomitant]
     Active Substance: BETAHISTINE
     Dates: start: 20211118, end: 20211230
  36. HYDROCHLOROTHIAZIDE\VALSARTAN [Concomitant]
     Active Substance: HYDROCHLOROTHIAZIDE\VALSARTAN
     Indication: Hypertension
     Dosage: 160 MG/12.5 MG
     Dates: start: 2015
  37. CIPRALEX [Concomitant]
     Active Substance: ESCITALOPRAM OXALATE
     Dates: start: 20211230, end: 20220112
  38. CIPRALEX [Concomitant]
     Active Substance: ESCITALOPRAM OXALATE
     Dates: start: 20220113
  39. CIPRALEX [Concomitant]
     Active Substance: ESCITALOPRAM OXALATE
     Dates: start: 20211229
  40. CIFLOSIN [Concomitant]
     Dates: start: 20211230, end: 20220104
  41. ASPIRIN [Concomitant]
     Active Substance: ASPIRIN
     Dates: start: 20211230, end: 20220112
  42. ASPIRIN [Concomitant]
     Active Substance: ASPIRIN
     Dates: start: 20220113, end: 20220210
  43. ACETAMINOPHEN [Concomitant]
     Active Substance: ACETAMINOPHEN
     Dates: start: 20211230, end: 20220112
  44. PAROL [Concomitant]
     Active Substance: ACETAMINOPHEN
     Dates: start: 20220113, end: 20220210
  45. METOCLOPRAMIDE [Concomitant]
     Active Substance: METOCLOPRAMIDE
     Dates: start: 20220113, end: 20220210
  46. PANTOPRAZOLE SODIUM [Concomitant]
     Active Substance: PANTOPRAZOLE SODIUM
     Dates: start: 20211217, end: 20211229
  47. TRAMADOL HCL [Concomitant]
     Active Substance: TRAMADOL HYDROCHLORIDE
     Dates: start: 20211217, end: 20211220
  48. TYGACIL [Concomitant]
     Active Substance: TIGECYCLINE
     Dates: start: 20211217, end: 20211230
  49. PAROKAN [Concomitant]
     Dates: start: 20211217, end: 20211229
  50. ONDANSETRON HYDROCHLORIDE [Concomitant]
     Active Substance: ONDANSETRON HYDROCHLORIDE
     Dates: start: 20211218, end: 20211220
  51. REDOX-C [Concomitant]
     Dates: start: 20211218, end: 20211222
  52. METHYLDOPA [Concomitant]
     Active Substance: METHYLDOPA
     Dates: start: 20211218, end: 20211220
  53. PLASBUMIN [Concomitant]
     Active Substance: ALBUMIN HUMAN
     Dates: start: 20211218, end: 20211218
  54. HALOPERIDOL [Concomitant]
     Active Substance: HALOPERIDOL
     Dates: start: 20211220, end: 20211220
  55. EQICEFT [Concomitant]
     Dates: start: 20211217, end: 20211217
  56. KAPRIL (TURKEY) [Concomitant]
     Dates: start: 20211220, end: 20211227
  57. FUROSEMIDE [Concomitant]
     Active Substance: FUROSEMIDE
     Dates: start: 20211220, end: 20211220
  58. METOCLOPRAMIDE [Concomitant]
     Active Substance: METOCLOPRAMIDE
     Dates: start: 20211221, end: 20211227
  59. CARDURA [Concomitant]
     Active Substance: DOXAZOSIN MESYLATE
     Dates: start: 20211221, end: 20211229
  60. EBASTINE [Concomitant]
     Active Substance: EBASTINE
     Dates: start: 20211229, end: 20211229
  61. DIAZEM (TURKEY) [Concomitant]
     Dates: start: 20211228, end: 20211229
  62. DICLOFENAC SODIUM [Concomitant]
     Active Substance: DICLOFENAC SODIUM
     Dates: start: 20211228, end: 20211229
  63. ONDANSETRON HYDROCHLORIDE [Concomitant]
     Active Substance: ONDANSETRON HYDROCHLORIDE
     Dates: start: 20211228, end: 20211228
  64. ONDANSETRON HYDROCHLORIDE [Concomitant]
     Active Substance: ONDANSETRON HYDROCHLORIDE
     Dates: start: 20211219, end: 20211219
  65. TIZANIDINE [Concomitant]
     Active Substance: TIZANIDINE
     Dates: start: 20211228, end: 20211229
  66. PLASBUMIN [Concomitant]
     Active Substance: ALBUMIN HUMAN
     Indication: Prophylaxis
     Dates: start: 20211225, end: 20211225
  67. PLASBUMIN [Concomitant]
     Active Substance: ALBUMIN HUMAN
     Dates: start: 20211218, end: 20211218
  68. DEXAMETHASONE [Concomitant]
     Active Substance: DEXAMETHASONE
     Dates: start: 20211224, end: 20211230
  69. MRSACIN [Concomitant]
     Dates: start: 20211218, end: 20211230
  70. ZIAXE [Concomitant]
     Indication: Prophylaxis
     Dosage: 250 MCG
     Dates: start: 20211209, end: 20211209

REACTIONS (1)
  - Intestinal perforation [Recovered/Resolved]

NARRATIVE: CASE EVENT DATE: 20211217
